FAERS Safety Report 4990217-X (Version None)
Quarter: 2006Q2

REPORT INFORMATION
  Report Type: 
  Country: None (occurrence: None)
  Receive Date: 20060501
  Receipt Date: 20060501
  Transmission Date: 20061013
  Serious: Yes (Life-Threatening, Hospitalization)
  Sender: FDA-Public Use
  Company Number: None

PATIENT
  Age: 81 Year
  Sex: Female
  Weight: 47.6277 kg

DRUGS (1)
  1. NATRECOR [Suspect]
     Indication: CARDIAC FAILURE CONGESTIVE
     Dosage: 2MCG/KG BOLUS  ONCE  IV BOLUS; 0.01MCG/KG/MIN  CONTINUOUS  IV DRIP
     Route: 040
     Dates: start: 20060427, end: 20060428

REACTIONS (1)
  - BLOOD GLUCOSE DECREASED [None]
